FAERS Safety Report 8449209-0 (Version None)
Quarter: 2012Q2

REPORT INFORMATION
  Report Type: 
  Country: None (occurrence: None)
  Receive Date: 20120619
  Receipt Date: 20111130
  Transmission Date: 20120825
  Serious: Yes (Other)
  Sender: FDA-Public Use
  Company Number: US-TEVA-2009003642

PATIENT
  Age: 54 Year
  Sex: Female
  Weight: 77.18 kg

DRUGS (5)
  1. FENTANYL-100 [Concomitant]
     Dosage: 3600 MICROGRAM;
     Route: 062
     Dates: start: 20080101
  2. FENTANYL CITRATE [Suspect]
     Route: 048
     Dates: start: 20100101
  3. DIABETEC [Concomitant]
  4. STEROID [Concomitant]
  5. FENTANYL CITRATE [Suspect]
     Indication: CANCER PAIN
     Dosage: 9600 MICROGRAM;
     Route: 048
     Dates: start: 20080401, end: 20080101

REACTIONS (4)
  - TOOTH LOSS [None]
  - DENTAL CARIES [None]
  - HYPOCALCAEMIA [None]
  - DRUG PRESCRIBING ERROR [None]
